FAERS Safety Report 7315819-7 (Version None)
Quarter: 2011Q1

REPORT INFORMATION
  Report Type: 
  Country: None (occurrence: None)
  Receive Date: 20110217
  Receipt Date: 20110217
  Transmission Date: 20110831
  Serious: Yes (Hospitalization, Other)
  Sender: FDA-Public Use
  Company Number: None

PATIENT
  Age: 55 Year
  Sex: Male
  Weight: 179 kg

DRUGS (2)
  1. VANCOMYCIN [Suspect]
     Dosage: 2000 MG BID IV; 40 MG BID IV
     Route: 042
     Dates: start: 20101223, end: 20101226
  2. VANCOMYCIN [Suspect]
     Dosage: 2000 MG BID IV; 40 MG BID IV
     Route: 042
     Dates: start: 20101223, end: 20101230

REACTIONS (1)
  - RENAL FAILURE ACUTE [None]
